FAERS Safety Report 10971771 (Version 1)
Quarter: 2015Q1

REPORT INFORMATION
  Report Type: Spontaneous
  Country: US (occurrence: None)
  Receive Date: 20150330
  Receipt Date: 20150330
  Transmission Date: 20150721
  Serious: Yes (Other)
  Sender: FDA-Public Use
  Company Number: None

PATIENT
  Age: 68 Year
  Sex: Female
  Weight: 72.58 kg

DRUGS (12)
  1. BUPROPION XL [Suspect]
     Active Substance: BUPROPION
     Indication: DEPRESSION
     Route: 048
     Dates: start: 20141120
  2. LISINOPRIL. [Concomitant]
     Active Substance: LISINOPRIL
  3. TRICOR [Concomitant]
     Active Substance: FENOFIBRATE
  4. METFORMIN [Concomitant]
     Active Substance: METFORMIN HYDROCHLORIDE
  5. MULTIVITAMIN [Concomitant]
     Active Substance: VITAMINS
  6. NORVASC [Concomitant]
     Active Substance: AMLODIPINE BESYLATE
  7. METOPROLOL [Concomitant]
     Active Substance: METOPROLOL
  8. CALCIUM PLUS D [Concomitant]
     Active Substance: CALCIUM\VITAMIN D
  9. ZOCOR [Concomitant]
     Active Substance: SIMVASTATIN
  10. XANAX [Concomitant]
     Active Substance: ALPRAZOLAM
  11. LEXAPRO [Concomitant]
     Active Substance: ESCITALOPRAM OXALATE
  12. OXYCODONE [Concomitant]
     Active Substance: OXYCODONE

REACTIONS (4)
  - Hallucination [None]
  - Abnormal behaviour [None]
  - Memory impairment [None]
  - Nightmare [None]

NARRATIVE: CASE EVENT DATE: 20141120
